FAERS Safety Report 6786791-3 (Version None)
Quarter: 2010Q2

REPORT INFORMATION
  Report Type: 
  Country: None (occurrence: None)
  Receive Date: 20100623
  Receipt Date: 20100616
  Transmission Date: 20101027
  Serious: Yes (Death, Life-Threatening, Disabling)
  Sender: FDA-Public Use
  Company Number: JP-BAYER-201011525BYL

PATIENT
  Age: 91 Year
  Sex: Female
  Weight: 65 kg

DRUGS (8)
  1. NEXAVAR [Suspect]
     Indication: HEPATIC NEOPLASM MALIGNANT
     Dosage: TOTAL DAILY DOSE: 400 MG  UNIT DOSE: 200 MG
     Route: 048
     Dates: start: 20091118, end: 20100106
  2. NEXAVAR [Suspect]
     Dosage: UNIT DOSE: 200 MG
     Route: 048
     Dates: start: 20100106, end: 20100127
  3. GASTER D [Concomitant]
     Indication: DECREASED APPETITE
     Route: 048
     Dates: start: 20091125, end: 20100217
  4. LASIX [Concomitant]
     Route: 048
     Dates: start: 20091216, end: 20100217
  5. ALDACTONE [Concomitant]
     Route: 048
     Dates: start: 20091216, end: 20100217
  6. MAGLAX [Concomitant]
     Route: 048
     Dates: start: 20100210, end: 20100217
  7. LIVACT [Concomitant]
     Route: 048
     Dates: start: 20100215, end: 20100217
  8. CALORYL [Concomitant]
     Route: 048
     Dates: start: 20100215, end: 20100217

REACTIONS (4)
  - ASCITES [None]
  - BLOOD BILIRUBIN INCREASED [None]
  - HEPATIC NEOPLASM MALIGNANT [None]
  - OEDEMA [None]
